FAERS Safety Report 15745243 (Version 4)
Quarter: 2020Q2

REPORT INFORMATION
  Report Type: Report from Study
  Country: PL (occurrence: PL)
  Receive Date: 20181220
  Receipt Date: 20200525
  Transmission Date: 20200713
  Serious: Yes (Hospitalization)
  Sender: FDA-Public Use
  Company Number: PL-ROCHE-2210168

PATIENT
  Age: 57 Year
  Sex: Male
  Weight: 85 kg

DRUGS (65)
  1. DIURESIN [Concomitant]
     Active Substance: INDAPAMIDE
     Route: 065
     Dates: start: 20180601, end: 20181201
  2. RANIGAST [Concomitant]
     Indication: PREMEDICATION
     Route: 065
     Dates: start: 20180528, end: 20180528
  3. RANIGAST [Concomitant]
     Route: 065
     Dates: start: 20180625, end: 20180625
  4. RANIGAST [Concomitant]
     Route: 065
     Dates: start: 20180806, end: 20180806
  5. PARACETAMOL [Concomitant]
     Active Substance: ACETAMINOPHEN
     Route: 065
     Dates: start: 20180917, end: 20180917
  6. RANIGAST [Concomitant]
     Route: 065
     Dates: start: 20180709, end: 20180709
  7. RANIGAST [Concomitant]
     Route: 065
     Dates: start: 20180820, end: 20180820
  8. RANIGAST [Concomitant]
     Route: 065
     Dates: start: 20180903, end: 20180903
  9. RANIGAST [Concomitant]
     Route: 065
     Dates: start: 20180917, end: 20180917
  10. PARACETAMOL [Concomitant]
     Active Substance: ACETAMINOPHEN
     Route: 065
     Dates: start: 20180604, end: 20180607
  11. PARACETAMOL [Concomitant]
     Active Substance: ACETAMINOPHEN
     Route: 065
     Dates: start: 20180806, end: 20180806
  12. PARACETAMOL [Concomitant]
     Active Substance: ACETAMINOPHEN
     Route: 065
     Dates: start: 20181001, end: 20181001
  13. KETONAL [KETOPROFEN] [Concomitant]
     Active Substance: KETOPROFEN
     Route: 065
     Dates: start: 20180709, end: 20180709
  14. KETONAL [KETOPROFEN] [Concomitant]
     Active Substance: KETOPROFEN
     Route: 065
     Dates: start: 20180917, end: 20180917
  15. ALNETA [Concomitant]
     Route: 065
     Dates: start: 20180601, end: 20180609
  16. NEDAL [Concomitant]
     Active Substance: NEBIVOLOL HYDROCHLORIDE
     Indication: HYPERTENSION
     Route: 065
     Dates: start: 2014, end: 20180527
  17. NEDAL [Concomitant]
     Active Substance: NEBIVOLOL HYDROCHLORIDE
     Route: 065
     Dates: start: 20180601, end: 20180609
  18. ONDANSETRON [Concomitant]
     Active Substance: ONDANSETRON
     Route: 065
     Dates: start: 20180723, end: 20180723
  19. ONDANSETRON [Concomitant]
     Active Substance: ONDANSETRON
     Route: 065
     Dates: start: 20180903, end: 20180903
  20. RANIGAST [Concomitant]
     Route: 065
     Dates: start: 20181001, end: 20181001
  21. PARACETAMOL [Concomitant]
     Active Substance: ACETAMINOPHEN
     Indication: PREMEDICATION
     Route: 065
     Dates: start: 20180528, end: 20180528
  22. PARACETAMOL [Concomitant]
     Active Substance: ACETAMINOPHEN
     Route: 065
     Dates: start: 20180903, end: 20180903
  23. ATEZOLIZUMAB. [Suspect]
     Active Substance: ATEZOLIZUMAB
     Indication: NON-SMALL CELL LUNG CANCER
     Route: 041
     Dates: start: 20180528
  24. KETONAL [KETOPROFEN] [Concomitant]
     Active Substance: KETOPROFEN
     Route: 065
     Dates: start: 20180820, end: 20180820
  25. KETONAL [KETOPROFEN] [Concomitant]
     Active Substance: KETOPROFEN
     Route: 065
     Dates: start: 20181001, end: 20181001
  26. ONDANSETRON [Concomitant]
     Active Substance: ONDANSETRON
     Indication: PREMEDICATION
     Route: 065
     Dates: start: 20180528, end: 20180528
  27. ONDANSETRON [Concomitant]
     Active Substance: ONDANSETRON
     Route: 065
     Dates: start: 20180709, end: 20180709
  28. ONDANSETRON [Concomitant]
     Active Substance: ONDANSETRON
     Route: 065
     Dates: start: 20180917, end: 20180917
  29. ONDANSETRON [Concomitant]
     Active Substance: ONDANSETRON
     Route: 065
     Dates: start: 20181001, end: 20181001
  30. RANIGAST [Concomitant]
     Route: 065
     Dates: start: 20180604, end: 20180604
  31. RANIGAST [Concomitant]
     Route: 065
     Dates: start: 20181015, end: 20181015
  32. RO6874281 (FAP IL2V MAB) [Suspect]
     Active Substance: SIMLUKAFUSP ALFA
     Dosage: DATE OF MOST RECENT DOSE PRIOR TO SERIOUS ADVERSE EVENT (SAE): AT 12:54
     Route: 042
     Dates: start: 20181015
  33. MILURIT [Concomitant]
     Active Substance: ALLOPURINOL
     Indication: PROPHYLAXIS
     Route: 065
     Dates: start: 20180530, end: 20181201
  34. KETONAL [KETOPROFEN] [Concomitant]
     Active Substance: KETOPROFEN
     Indication: PREMEDICATION
     Route: 065
     Dates: start: 20180604, end: 20180604
  35. KETONAL [KETOPROFEN] [Concomitant]
     Active Substance: KETOPROFEN
     Route: 065
     Dates: start: 20180723, end: 20180723
  36. KETONAL [KETOPROFEN] [Concomitant]
     Active Substance: KETOPROFEN
     Route: 065
     Dates: start: 20180806, end: 20180806
  37. ONDANSETRON [Concomitant]
     Active Substance: ONDANSETRON
     Route: 065
     Dates: start: 20180618, end: 20180618
  38. ONDANSETRON [Concomitant]
     Active Substance: ONDANSETRON
     Route: 065
     Dates: start: 20180625, end: 20180625
  39. ONDANSETRON [Concomitant]
     Active Substance: ONDANSETRON
     Route: 065
     Dates: start: 20180806, end: 20180806
  40. PARACETAMOL [Concomitant]
     Active Substance: ACETAMINOPHEN
     Route: 065
     Dates: start: 20180709, end: 20180709
  41. PARACETAMOL [Concomitant]
     Active Substance: ACETAMINOPHEN
     Route: 065
     Dates: start: 20180723, end: 20180723
  42. ACETAMINOPHEN. [Concomitant]
     Active Substance: ACETAMINOPHEN
     Indication: PREMEDICATION
     Route: 065
     Dates: start: 20180806, end: 20180806
  43. NEOPARIN [Concomitant]
     Active Substance: ENOXAPARIN SODIUM
     Indication: ANTICOAGULANT THERAPY
     Route: 065
     Dates: start: 20180531, end: 20181201
  44. KETONAL [KETOPROFEN] [Concomitant]
     Active Substance: KETOPROFEN
     Route: 065
     Dates: start: 20181015, end: 20181015
  45. ONDANSETRON [Concomitant]
     Active Substance: ONDANSETRON
     Route: 065
     Dates: start: 20180611, end: 20180611
  46. RANIGAST [Concomitant]
     Route: 065
     Dates: start: 20180611, end: 20180611
  47. PARACETAMOL [Concomitant]
     Active Substance: ACETAMINOPHEN
     Route: 065
     Dates: start: 20180611, end: 20180611
  48. ATEZOLIZUMAB. [Suspect]
     Active Substance: ATEZOLIZUMAB
     Dosage: DATE OF MOST RECENT DOSE PRIOR TO SAE AT 11:14
     Route: 042
     Dates: start: 20181015
  49. KETONAL [KETOPROFEN] [Concomitant]
     Active Substance: KETOPROFEN
     Route: 065
     Dates: start: 20180611, end: 20180611
  50. KETONAL [KETOPROFEN] [Concomitant]
     Active Substance: KETOPROFEN
     Route: 065
     Dates: start: 20180618, end: 20180618
  51. KETONAL [KETOPROFEN] [Concomitant]
     Active Substance: KETOPROFEN
     Route: 065
     Dates: start: 20180903, end: 20180903
  52. RANIGAST [Concomitant]
     Route: 065
     Dates: start: 20180618, end: 20180618
  53. RANIGAST [Concomitant]
     Route: 065
     Dates: start: 20180723, end: 20180723
  54. RO6874281 (FAP IL2V MAB) [Suspect]
     Active Substance: SIMLUKAFUSP ALFA
     Indication: NON-SMALL CELL LUNG CANCER
     Route: 042
     Dates: start: 20180528
  55. KETONAL [KETOPROFEN] [Concomitant]
     Active Substance: KETOPROFEN
     Route: 065
     Dates: start: 20180528, end: 20180528
  56. ALNETA [Concomitant]
     Indication: HYPERTENSION
     Route: 065
     Dates: start: 2014, end: 20180527
  57. ALNETA [Concomitant]
     Route: 065
     Dates: start: 20180612, end: 20181201
  58. NEDAL [Concomitant]
     Active Substance: NEBIVOLOL HYDROCHLORIDE
     Route: 065
     Dates: start: 20180612, end: 20181201
  59. DIURESIN [Concomitant]
     Active Substance: INDAPAMIDE
     Indication: HYPERTENSION
     Route: 065
     Dates: start: 2014, end: 20180527
  60. ONDANSETRON [Concomitant]
     Active Substance: ONDANSETRON
     Route: 065
     Dates: start: 20180820, end: 20180820
  61. ONDANSETRON [Concomitant]
     Active Substance: ONDANSETRON
     Route: 065
     Dates: start: 20181015, end: 20181015
  62. PARACETAMOL [Concomitant]
     Active Substance: ACETAMINOPHEN
     Route: 065
     Dates: start: 20180618, end: 20180618
  63. PARACETAMOL [Concomitant]
     Active Substance: ACETAMINOPHEN
     Route: 065
     Dates: start: 20180618, end: 20180618
  64. PARACETAMOL [Concomitant]
     Active Substance: ACETAMINOPHEN
     Route: 065
     Dates: start: 20180820, end: 20180820
  65. PARACETAMOL [Concomitant]
     Active Substance: ACETAMINOPHEN
     Route: 065
     Dates: start: 20181015, end: 20181015

REACTIONS (1)
  - Tracheo-oesophageal fistula [Recovered/Resolved]

NARRATIVE: CASE EVENT DATE: 20181030
